FAERS Safety Report 6159058-4 (Version None)
Quarter: 2009Q2

REPORT INFORMATION
  Report Type: 
  Country: None (occurrence: None)
  Receive Date: 20090414
  Receipt Date: 20090403
  Transmission Date: 20091009
  Serious: Yes (Other)
  Sender: FDA-Public Use
  Company Number: 230001M09PRT

PATIENT
  Age: 26 Year
  Sex: Male

DRUGS (1)
  1. REBIF [Suspect]
     Dates: start: 20041001

REACTIONS (2)
  - RECTAL HAEMORRHAGE [None]
  - WEIGHT DECREASED [None]
